FAERS Safety Report 18521586 (Version 1)
Quarter: 2020Q4

REPORT INFORMATION
  Report Type: Spontaneous
  Country: US (occurrence: US)
  Receive Date: 20201119
  Receipt Date: 20201119
  Transmission Date: 20210114
  Serious: No
  Sender: FDA-Public Use
  Company Number: US-CIPLA LTD.-2020US03727

PATIENT

DRUGS (1)
  1. GABAPENTIN. [Suspect]
     Active Substance: GABAPENTIN
     Indication: DIABETIC NEUROPATHY
     Dosage: 300 MILLIGRAM, TID (ONE CAPSULE, 3 TIMES A DAY)
     Route: 048
     Dates: start: 2020

REACTIONS (4)
  - Extra dose administered [Unknown]
  - Off label use [Unknown]
  - Expired product administered [Unknown]
  - Product use in unapproved indication [Unknown]

NARRATIVE: CASE EVENT DATE: 2020
